FAERS Safety Report 4433273-X (Version None)
Quarter: 2004Q3

REPORT INFORMATION
  Report Type: 
  Country: None (occurrence: None)
  Receive Date: 20040824
  Receipt Date: 20040812
  Transmission Date: 20050211
  Serious: Yes (Hospitalization)
  Sender: FDA-Public Use
  Company Number: DRON00204002739

PATIENT
  Age: 51 Year
  Sex: Male
  Weight: 63.5036 kg

DRUGS (32)
  1. MARINOL [Suspect]
     Indication: ILL-DEFINED DISORDER
     Dosage: DAILY PO
     Route: 048
  2. ARANESP [Suspect]
     Indication: ANAEMIA OF MALIGNANT DISEASE
     Dosage: 200 IU QD SC
     Route: 058
     Dates: start: 20030821
  3. KYTRIL [Suspect]
     Indication: ILL-DEFINED DISORDER
     Dosage: 1 MG QD IV
     Route: 042
     Dates: start: 20030828, end: 20030828
  4. OXYCONTIN [Suspect]
     Indication: ILL-DEFINED DISORDER
     Dosage: 20 MG BID PO
     Route: 048
     Dates: start: 20030806, end: 20030905
  5. NEURONTIN [Suspect]
     Indication: ILL-DEFINED DISORDER
     Dosage: DAILY PO
     Route: 048
  6. ARICEPT [Suspect]
     Indication: ILL-DEFINED DISORDER
     Dosage: DAILY PO
     Route: 048
  7. MORPHINE SULFATE [Concomitant]
  8. CHLORPROMAZINE [Concomitant]
  9. OXYCODONE (OXYCODONE) [Concomitant]
  10. PROGRAF [Concomitant]
  11. PROTONIX (PROTONIX) [Concomitant]
  12. PRANDIN ^KUHN^ (DEFLAZACORT) [Concomitant]
  13. ZOLOFT [Concomitant]
  14. GLIPIZIDE [Concomitant]
  15. PROCARDIA [Concomitant]
  16. MAGNESIUM (MAGNESIUM) [Concomitant]
  17. LEVAQUIN [Concomitant]
  18. PENTAMIDINE (PENTAMIDINE) [Concomitant]
  19. PERICOLACE (PERICOLACE) [Concomitant]
  20. DULCOLAX [Concomitant]
  21. ACETYLSALICYLIC ACID SRT [Concomitant]
  22. LASIX (LASIX) [Concomitant]
  23. LEUKINE [Concomitant]
  24. DEXAMETHASONE [Concomitant]
  25. ADRIAMYCIN PFS [Concomitant]
  26. CISPLATIN [Concomitant]
  27. SENECOT (SENECOT) [Concomitant]
  28. INDERAL (INDERAL) [Concomitant]
  29. MULTIVITAMIN [Concomitant]
  30. INSULIN [Concomitant]
  31. ALDACTONE (ALDACTONE) [Concomitant]
  32. MEGACE (MEGACE) [Concomitant]

REACTIONS (17)
  - BLOOD GLUCOSE INCREASED [None]
  - BLOOD MAGNESIUM DECREASED [None]
  - BLOOD SODIUM DECREASED [None]
  - CONFUSIONAL STATE [None]
  - CONTUSION [None]
  - CONVULSION [None]
  - EYE INJURY [None]
  - FACE INJURY [None]
  - FALL [None]
  - GASTROINTESTINAL HAEMORRHAGE [None]
  - HAEMOLYTIC ANAEMIA [None]
  - LIVER TRANSPLANT REJECTION [None]
  - MENTAL STATUS CHANGES [None]
  - METABOLIC ENCEPHALOPATHY [None]
  - NAUSEA [None]
  - PANCYTOPENIA [None]
  - VOMITING [None]
